FAERS Safety Report 24620849 (Version 1)
Quarter: 2024Q4

REPORT INFORMATION
  Report Type: Report from Study
  Country: US (occurrence: US)
  Receive Date: 20241114
  Receipt Date: 20241114
  Transmission Date: 20250114
  Serious: Yes (Other)
  Sender: NOVARTIS
  Company Number: US-002147023-NVSC2024US090885

PATIENT
  Sex: Female

DRUGS (2)
  1. KESIMPTA [Suspect]
     Active Substance: OFATUMUMAB
     Indication: Multiple sclerosis
     Dosage: UNK
     Route: 058
     Dates: start: 20240219
  2. KESIMPTA [Suspect]
     Active Substance: OFATUMUMAB
     Indication: Relapsing multiple sclerosis

REACTIONS (15)
  - Paralysis [Unknown]
  - Tension headache [Unknown]
  - Feeling hot [Unknown]
  - Insomnia [Unknown]
  - Memory impairment [Unknown]
  - Joint injury [Unknown]
  - Band sensation [Unknown]
  - Dysstasia [Unknown]
  - Back pain [Unknown]
  - Spinal pain [Unknown]
  - Sinus disorder [Unknown]
  - Musculoskeletal discomfort [Unknown]
  - Pain [Unknown]
  - Burning sensation [Unknown]
  - Headache [Unknown]
